FAERS Safety Report 4650450-3 (Version None)
Quarter: 2005Q2

REPORT INFORMATION
  Report Type: 
  Country: None (occurrence: None)
  Receive Date: 20050429
  Receipt Date: 20050418
  Transmission Date: 20051028
  Serious: Yes (Other)
  Sender: FDA-Public Use
  Company Number: 2005034219

PATIENT
  Age: 46 Year
  Sex: Male

DRUGS (6)
  1. CAMPTOSAR [Suspect]
     Indication: GASTRIC CANCER
     Dosage: 100 MG INTRAVENOUS
     Route: 042
     Dates: start: 20041020, end: 20050129
  2. TEGAFUR (TEGAFAUR) [Suspect]
     Indication: GASTRIC CANCER
     Dosage: 100 MG DAILY, ORAL
     Route: 048
     Dates: start: 20041020, end: 20050114
  3. DEXAMETHASONE SODIUM PHOSPHATE [Concomitant]
  4. AZASETRON HYDROCHLORIDE (AZASETRON HYDROCHLORIDE) [Concomitant]
  5. CISPLATIN [Concomitant]
  6. AMINOPHYLLIN [Concomitant]

REACTIONS (4)
  - CHEST X-RAY ABNORMAL [None]
  - COUGH [None]
  - INSOMNIA [None]
  - NEUTROPENIA [None]
